FAERS Safety Report 7376981-3 (Version None)
Quarter: 2011Q1

REPORT INFORMATION
  Report Type: 
  Country: None (occurrence: None)
  Receive Date: 20110328
  Receipt Date: 20110322
  Transmission Date: 20110831
  Serious: Yes (Other)
  Sender: FDA-Public Use
  Company Number: FR-BIOGENIDEC-2011BI000165

PATIENT
  Age: 64 Year
  Sex: Female

DRUGS (5)
  1. AVONEX [Suspect]
     Indication: MULTIPLE SCLEROSIS
     Route: 030
     Dates: start: 20070101, end: 20101029
  2. ACETAMINOPHEN [Concomitant]
  3. ANTIBIOTIC [Concomitant]
  4. MANTADIX [Concomitant]
  5. BIPROFENID [Concomitant]

REACTIONS (1)
  - BREAST CANCER [None]
